FAERS Safety Report 20306820 (Version 1)
Quarter: 2022Q1

REPORT INFORMATION
  Report Type: Spontaneous
  Country: US (occurrence: US)
  Receive Date: 20220106
  Receipt Date: 20220106
  Transmission Date: 20220423
  Serious: Yes (Other)
  Sender: FDA-Public Use
  Company Number: US-COOPERSURGICAL, INC.-US-2021CPS003970

PATIENT
  Age: 22 Year
  Sex: Female

DRUGS (1)
  1. PARAGARD T 380A [Suspect]
     Active Substance: COPPER

REACTIONS (9)
  - Gastrointestinal injury [Recovered/Resolved]
  - Abdominal adhesions [Recovered/Resolved]
  - Intestinal obstruction [Recovered/Resolved]
  - Embedded device [Recovered/Resolved]
  - Uterine perforation [Recovered/Resolved]
  - Pregnancy with contraceptive device [Recovered/Resolved]
  - Device dislocation [Recovered/Resolved]
  - Premature delivery [Recovered/Resolved]
  - Drug ineffective [Unknown]
